FAERS Safety Report 11138780 (Version 1)
Quarter: 2015Q2

REPORT INFORMATION
  Report Type: Spontaneous
  Country: US (occurrence: US)
  Receive Date: 20150527
  Receipt Date: 20150527
  Transmission Date: 20150821
  Serious: No
  Sender: FDA-Public Use
  Company Number: US-NOVEN PHARMACEUTICALS, INC.-US2015000144

PATIENT
  Age: 59 Year
  Sex: Female

DRUGS (3)
  1. MINIVELLE [Suspect]
     Active Substance: ESTRADIOL
     Indication: BONE DENSITY DECREASED
  2. MINIVELLE [Suspect]
     Active Substance: ESTRADIOL
     Indication: URINARY INCONTINENCE
  3. MINIVELLE [Suspect]
     Active Substance: ESTRADIOL
     Indication: HOT FLUSH
     Dosage: 0.1 MG, UNK
     Route: 062
     Dates: start: 201501

REACTIONS (3)
  - Metrorrhagia [Not Recovered/Not Resolved]
  - Drug prescribing error [Unknown]
  - Product quality issue [Unknown]

NARRATIVE: CASE EVENT DATE: 201501
